FAERS Safety Report 15222759 (Version 11)
Quarter: 2022Q3

REPORT INFORMATION
  Report Type: Report from Study
  Country: CO (occurrence: CO)
  Receive Date: 20180731
  Receipt Date: 20220819
  Transmission Date: 20221026
  Serious: Yes (Life-Threatening, Hospitalization, Other)
  Sender: FDA-Public Use
  Company Number: CO-SHIRE-CO201730041

PATIENT
  Age: 64 Year
  Sex: Male
  Weight: 40 kg

DRUGS (3)
  1. VELAGLUCERASE ALFA [Suspect]
     Active Substance: VELAGLUCERASE ALFA
     Indication: Gaucher^s disease type I
     Dosage: 3600 INTERNATIONAL UNIT, Q2WEEKS
     Route: 042
     Dates: start: 20170714
  2. VELAGLUCERASE ALFA [Suspect]
     Active Substance: VELAGLUCERASE ALFA
     Dosage: 400 INTERNATIONAL UNIT, Q2WEEKS
     Route: 042
     Dates: start: 20170714
  3. VELAGLUCERASE ALFA [Suspect]
     Active Substance: VELAGLUCERASE ALFA
     Dosage: 3600 INTERNATIONAL UNIT, 2/MONTH
     Route: 042
     Dates: start: 20170801

REACTIONS (35)
  - Asphyxia [Recovering/Resolving]
  - Asthenia [Recovering/Resolving]
  - Syncope [Recovering/Resolving]
  - Haemoglobin decreased [Recovered/Resolved]
  - Dizziness [Recovering/Resolving]
  - Vomiting [Recovering/Resolving]
  - Pyrexia [Recovering/Resolving]
  - Constipation [Not Recovered/Not Resolved]
  - Unevaluable event [Recovering/Resolving]
  - Type 1 diabetes mellitus [Unknown]
  - Diabetic retinopathy [Unknown]
  - Nephrolithiasis [Unknown]
  - Loss of consciousness [Recovering/Resolving]
  - Anaemia [Recovering/Resolving]
  - Neuropathy peripheral [Recovering/Resolving]
  - Peripheral sensory neuropathy [Unknown]
  - Osteoporosis [Unknown]
  - Benign prostatic hyperplasia [Unknown]
  - Chronic obstructive pulmonary disease [Unknown]
  - Diarrhoea [Recovering/Resolving]
  - Malaise [Recovering/Resolving]
  - Blood pressure decreased [Recovering/Resolving]
  - Abdominal pain upper [Unknown]
  - Bone pain [Recovering/Resolving]
  - Abdominal pain [Not Recovered/Not Resolved]
  - Illness [Recovering/Resolving]
  - Urinary tract infection [Recovering/Resolving]
  - Nausea [Recovering/Resolving]
  - Product availability issue [Unknown]
  - Product dose omission issue [Unknown]
  - Gastrointestinal infection [Recovering/Resolving]
  - Weight increased [Recovering/Resolving]
  - Body height decreased [Recovering/Resolving]
  - Gaucher^s disease [Recovering/Resolving]
  - Product prescribing error [Unknown]

NARRATIVE: CASE EVENT DATE: 20171022
